FAERS Safety Report 5019576-9 (Version None)
Quarter: 2006Q2

REPORT INFORMATION
  Report Type: 
  Country: None (occurrence: None)
  Receive Date: 20060530
  Receipt Date: 20060517
  Transmission Date: 20061013
  Serious: Yes (Hospitalization)
  Sender: FDA-Public Use
  Company Number: CHNY2006BR01590

PATIENT
  Age: 39 Year
  Sex: Male
  Weight: 74 kg

DRUGS (2)
  1. TRIMEDAL (NCH)(VITAMIN C, TROXERUTIN, ACETAMINOPHEN (PARACETAMOL), PHE [Suspect]
     Indication: INFLUENZA
     Dosage: 1 DF, BID, ORAL
     Route: 048
     Dates: start: 20060516
  2. PRAVASTATIN [Concomitant]

REACTIONS (2)
  - CELLULITIS [None]
  - DRUG HYPERSENSITIVITY [None]
